FAERS Safety Report 18485343 (Version 1)
Quarter: 2020Q4

REPORT INFORMATION
  Report Type: Spontaneous
  Country: US (occurrence: US)
  Receive Date: 20201109
  Receipt Date: 20201109
  Transmission Date: 20210114
  Serious: Yes (Hospitalization)
  Sender: FDA-Public Use
  Company Number: None

PATIENT
  Age: 3 Year
  Sex: Female

DRUGS (1)
  1. TRACLEER [Suspect]
     Active Substance: BOSENTAN
     Indication: CARDIO-RESPIRATORY DISTRESS
     Route: 048
     Dates: start: 20190618

REACTIONS (2)
  - Condition aggravated [None]
  - Pain [None]

NARRATIVE: CASE EVENT DATE: 20201027
